FAERS Safety Report 7099027-3 (Version None)
Quarter: 2010Q4

REPORT INFORMATION
  Report Type: 
  Country: None (occurrence: None)
  Receive Date: 20101112
  Receipt Date: 20101103
  Transmission Date: 20110411
  Serious: Yes (Hospitalization)
  Sender: FDA-Public Use
  Company Number: US-AMGEN-USASP2010003201

PATIENT

DRUGS (1)
  1. ENBREL [Suspect]
     Indication: PSORIATIC ARTHROPATHY
     Dosage: 50 MG, QWK
     Dates: start: 20061028

REACTIONS (6)
  - ACCIDENT AT WORK [None]
  - ARTHRODESIS [None]
  - JOINT INJURY [None]
  - KNEE ARTHROPLASTY [None]
  - LOCALISED INFECTION [None]
  - STAPHYLOCOCCAL INFECTION [None]
